FAERS Safety Report 15322255 (Version 1)
Quarter: 2018Q3

REPORT INFORMATION
  Report Type: Spontaneous
  Country: PT (occurrence: PT)
  Receive Date: 20180827
  Receipt Date: 20180827
  Transmission Date: 20181010
  Serious: Yes (Hospitalization)
  Sender: FDA-Public Use
  Company Number: PHHY2018PT078581

PATIENT
  Age: 13 Year
  Sex: Female

DRUGS (3)
  1. IBUPROFENO [Suspect]
     Active Substance: IBUPROFEN
     Indication: PYREXIA
     Route: 065
  2. IBUPROFENO [Suspect]
     Active Substance: IBUPROFEN
     Indication: RHINORRHOEA
  3. IBUPROFENO [Suspect]
     Active Substance: IBUPROFEN
     Indication: MYALGIA

REACTIONS (1)
  - Vulval ulceration [Recovering/Resolving]
